FAERS Safety Report 15807276 (Version 1)
Quarter: 2018Q4

REPORT INFORMATION
  Report Type: Spontaneous
  Country: US (occurrence: US)
  Receive Date: 20181214
  Receipt Date: 20181214
  Transmission Date: 20190205
  Serious: No
  Sender: FDA-Public Use
  Company Number: None

PATIENT
  Age: 50 Year
  Sex: Female

DRUGS (1)
  1. COSENTYX [Suspect]
     Active Substance: SECUKINUMAB
     Dates: start: 20180314

REACTIONS (3)
  - Feeling abnormal [None]
  - Therapy cessation [None]
  - Influenza [None]

NARRATIVE: CASE EVENT DATE: 20181213
